FAERS Safety Report 5797952-4 (Version None)
Quarter: 2008Q3

REPORT INFORMATION
  Report Type: 
  Country: None (occurrence: None)
  Receive Date: 20080701
  Receipt Date: 20080701
  Transmission Date: 20090109
  Serious: Yes (Other)
  Sender: FDA-Public Use
  Company Number: None

PATIENT
  Sex: Male
  Weight: 67.6 kg

DRUGS (1)
  1. LAMICTAL [Suspect]
     Dosage: 1 TAB BID PO
     Route: 048
     Dates: start: 20020401

REACTIONS (1)
  - NO ADVERSE EVENT [None]
